FAERS Safety Report 10697552 (Version 4)
Quarter: 2015Q1

REPORT INFORMATION
  Report Type: Spontaneous
  Country: JP (occurrence: JP)
  Receive Date: 20150108
  Receipt Date: 20150202
  Transmission Date: 20150721
  Serious: Yes (Death, Life-Threatening, Other)
  Sender: FDA-Public Use
  Company Number: JP-PFIZER INC-2015004898

PATIENT
  Age: 69 Year
  Sex: Male

DRUGS (2)
  1. LYRICA [Suspect]
     Active Substance: PREGABALIN
     Dosage: 75 MG, 2X/DAY
     Route: 048
     Dates: start: 20140813, end: 201410
  2. DEPAS [Suspect]
     Active Substance: ETIZOLAM
     Dosage: 1.5 MG, 1X/DAY
     Route: 048
     Dates: start: 20140813, end: 201410

REACTIONS (4)
  - Suicide attempt [Not Recovered/Not Resolved]
  - Abnormal behaviour [Unknown]
  - Pneumonia [Fatal]
  - Suicidal ideation [Not Recovered/Not Resolved]

NARRATIVE: CASE EVENT DATE: 20141215
